FAERS Safety Report 4651453-5 (Version None)
Quarter: 2005Q2

REPORT INFORMATION
  Report Type: 
  Country: None (occurrence: None)
  Receive Date: 20050404
  Receipt Date: 20050113
  Transmission Date: 20051028
  Serious: Yes (Hospitalization, Disabling)
  Sender: FDA-Public Use
  Company Number: USA050188250

PATIENT
  Age: 80 Year
  Sex: Female

DRUGS (8)
  1. ZYPREXA [Suspect]
  2. CYMBALTA [Suspect]
     Indication: NEUROPATHY
     Dosage: 30 MG/1 DAY
     Dates: start: 20050106
  3. IBUPROFEN [Concomitant]
  4. NEXIUM [Concomitant]
  5. RITALIN [Concomitant]
  6. PROVIGIL [Concomitant]
  7. PAMELOR [Concomitant]
  8. VALIUM [Concomitant]

REACTIONS (5)
  - DIARRHOEA [None]
  - HYDROCEPHALUS [None]
  - HYPERHIDROSIS [None]
  - NAUSEA [None]
  - NEUROPATHY PERIPHERAL [None]
